FAERS Safety Report 8076586-5 (Version None)
Quarter: 2012Q1

REPORT INFORMATION
  Report Type: 
  Country: None (occurrence: None)
  Receive Date: 20120127
  Receipt Date: 20120113
  Transmission Date: 20120608
  Serious: Yes (Other)
  Sender: FDA-Public Use
  Company Number: CA-JNJFOC-20120111848

PATIENT
  Sex: Male
  Weight: 93.9 kg

DRUGS (2)
  1. REMICADE [Suspect]
     Indication: ANKYLOSING SPONDYLITIS
     Route: 042
     Dates: start: 20120112
  2. REMICADE [Suspect]
     Route: 042

REACTIONS (4)
  - STRESS [None]
  - CARDIAC DISORDER [None]
  - HERPES ZOSTER [None]
  - PAIN [None]
